FAERS Safety Report 12517185 (Version 4)
Quarter: 2017Q2

REPORT INFORMATION
  Report Type: Report from Study
  Country: CO (occurrence: CO)
  Receive Date: 20160630
  Receipt Date: 20170405
  Transmission Date: 20170830
  Serious: Yes (Other)
  Sender: FDA-Public Use
  Company Number: PHHY2016CO050402

PATIENT
  Age: 28 Year
  Sex: Male
  Weight: 70 kg

DRUGS (2)
  1. REVOLADE [Suspect]
     Active Substance: ELTROMBOPAG
     Indication: IMMUNE THROMBOCYTOPENIC PURPURA
     Dosage: 25 MG, TID
     Route: 048
     Dates: start: 20160418
  2. REVOLADE [Suspect]
     Active Substance: ELTROMBOPAG
     Dosage: 25 MG, TID
     Route: 048

REACTIONS (10)
  - Skin exfoliation [Unknown]
  - Pyrexia [Unknown]
  - Skin disorder [Unknown]
  - Blindness [Unknown]
  - Rash [Unknown]
  - Pruritus [Unknown]
  - Platelet count increased [Unknown]
  - Petechiae [Recovered/Resolved]
  - Thrombosis [Unknown]
  - Viral infection [Unknown]

NARRATIVE: CASE EVENT DATE: 20160616
